FAERS Safety Report 7989163-9 (Version None)
Quarter: 2011Q4

REPORT INFORMATION
  Report Type: 
  Country: None (occurrence: None)
  Receive Date: 20111219
  Receipt Date: 20111208
  Transmission Date: 20120403
  Serious: Yes (Other)
  Sender: FDA-Public Use
  Company Number: CA-BRISTOL-MYERS SQUIBB COMPANY-15543341

PATIENT
  Age: 57 Year
  Sex: Female

DRUGS (5)
  1. TYLENOL W/ CODEINE NO. 3 [Concomitant]
  2. PREDNISONE [Concomitant]
  3. ORENCIA [Suspect]
     Indication: RHEUMATOID ARTHRITIS
     Dosage: LAST DOSE ON 13SEP11,NO OF INFUSIONS:15
     Route: 042
     Dates: start: 20100107
  4. AMLODIPINE BESYLATE [Concomitant]
  5. PREMARIN [Concomitant]

REACTIONS (4)
  - CARDIAC DISORDER [None]
  - CHRONIC OBSTRUCTIVE PULMONARY DISEASE [None]
  - LOWER RESPIRATORY TRACT INFECTION [None]
  - FATIGUE [None]
